FAERS Safety Report 16732764 (Version 1)
Quarter: 2019Q3

REPORT INFORMATION
  Report Type: Report from Study
  Country: None (occurrence: CL)
  Receive Date: 20190823
  Receipt Date: 20190823
  Transmission Date: 20191005
  Serious: Yes (Life-Threatening, Other)
  Sender: FDA-Public Use
  Company Number: CL-ABBVIE-19K-034-2897772-00

PATIENT
  Age: 55 Year
  Sex: Female

DRUGS (1)
  1. HUMIRA [Suspect]
     Active Substance: ADALIMUMAB
     Indication: RHEUMATOID ARTHRITIS
     Route: 058
     Dates: start: 20171207

REACTIONS (3)
  - Vital functions abnormal [Unknown]
  - Asthmatic crisis [Recovering/Resolving]
  - Oxygen saturation decreased [Unknown]

NARRATIVE: CASE EVENT DATE: 201905
